FAERS Safety Report 5883642-6 (Version None)
Quarter: 2008Q3

REPORT INFORMATION
  Report Type: 
  Country: None (occurrence: None)
  Receive Date: 20080915
  Receipt Date: 20080904
  Transmission Date: 20090109
  Serious: Yes (Death, Other)
  Sender: FDA-Public Use
  Company Number: US-BAYER-200826064GPV

PATIENT
  Age: 44 Year
  Sex: Male
  Weight: 82 kg

DRUGS (9)
  1. FLUDARABINE PHOSPHATE [Suspect]
     Indication: CORD BLOOD TRANSPLANT THERAPY
     Route: 065
  2. MELPHALAN [Concomitant]
     Indication: CORD BLOOD TRANSPLANT THERAPY
     Route: 065
  3. THIOTEPA [Concomitant]
     Indication: ACUTE LYMPHOCYTIC LEUKAEMIA
     Route: 065
  4. RABBIT ANTI-THYMOCYTE GLOBULIN [Concomitant]
     Indication: CORD BLOOD TRANSPLANT THERAPY
     Route: 065
  5. RABBIT ANTI-THYMOCYTE GLOBULIN [Concomitant]
     Route: 065
  6. TACROLIMUS [Concomitant]
     Indication: PROPHYLAXIS AGAINST GRAFT VERSUS HOST DISEASE
     Route: 065
  7. METHOTREXATE [Concomitant]
     Indication: PROPHYLAXIS AGAINST GRAFT VERSUS HOST DISEASE
     Route: 065
  8. NEUPOGEN [Concomitant]
     Indication: CORD BLOOD TRANSPLANT THERAPY
     Dosage: TOTAL DAILY DOSE: 5 ?G/KG
     Route: 058
  9. ANTIBIOTICS [Concomitant]
     Indication: ANTIBIOTIC PROPHYLAXIS
     Route: 065

REACTIONS (2)
  - ACUTE RESPIRATORY DISTRESS SYNDROME [None]
  - INFECTION [None]
